FAERS Safety Report 4728226-8 (Version None)
Quarter: 2005Q3

REPORT INFORMATION
  Report Type: 
  Country: None (occurrence: None)
  Receive Date: 20050729
  Receipt Date: 20050120
  Transmission Date: 20060218
  Serious: Yes (Life-Threatening, Hospitalization, Disabling)
  Sender: FDA-Public Use
  Company Number: US-BRISTOL-MYERS SQUIBB COMPANY-12832382

PATIENT
  Age: 60 Year
  Sex: Male
  Weight: 141 kg

DRUGS (14)
  1. BLENOXANE [Suspect]
     Indication: HODGKIN'S DISEASE
     Dosage: PT RECEIVED 8 DOSES.  START DATE:  10-AUG-2004
     Route: 042
     Dates: start: 20040810, end: 20041122
  2. MESNA [Concomitant]
     Indication: PREMEDICATION
  3. DECADRON [Concomitant]
     Indication: PREMEDICATION
  4. ZOFRAN [Concomitant]
     Indication: PREMEDICATION
  5. ALLOPURINOL [Concomitant]
  6. PROTONIX [Concomitant]
  7. ATIVAN [Concomitant]
  8. COUMADIN [Concomitant]
  9. COMPAZINE [Concomitant]
  10. ACTOS [Concomitant]
  11. GLUCOPHAGE [Concomitant]
  12. SINGULAIR [Concomitant]
  13. ALBUTEROL [Concomitant]
  14. HALCION [Concomitant]

REACTIONS (1)
  - PULMONARY TOXICITY [None]
